FAERS Safety Report 7137403-0 (Version None)
Quarter: 2010Q4

REPORT INFORMATION
  Report Type: 
  Country: None (occurrence: None)
  Receive Date: 20101206
  Receipt Date: 20101201
  Transmission Date: 20110411
  Serious: Yes (Death)
  Sender: FDA-Public Use
  Company Number: PHHY2010DE73679

PATIENT
  Sex: Female
  Weight: 72 kg

DRUGS (3)
  1. ACLASTA/ZOLEDRONATE T29581+A++OS [Suspect]
     Dosage: 5 MG ONCE YEARLY
     Route: 042
     Dates: start: 20100506
  2. VITAMIN D [Concomitant]
     Indication: OSTEOPOROSIS
  3. CALCIUM [Concomitant]
     Indication: OSTEOPOROSIS
     Dosage: UNK

REACTIONS (1)
  - DEATH [None]
